FAERS Safety Report 9333059 (Version 3)
Quarter: 2013Q3

REPORT INFORMATION
  Report Type: Spontaneous
  Country: CH (occurrence: CH)
  Receive Date: 20130606
  Receipt Date: 20130823
  Transmission Date: 20140515
  Serious: Yes (Other)
  Sender: FDA-Public Use
  Company Number: CH-ALLERGAN-1307743US

PATIENT
  Sex: Female

DRUGS (3)
  1. GANFORT AUGENTROPFEN [Suspect]
     Indication: NORMAL TENSION GLAUCOMA
     Dosage: 2 GTT, QPM
     Route: 047
     Dates: start: 201110, end: 20130519
  2. GANFORT AUGENTROPFEN [Suspect]
     Dosage: UNK
     Route: 047
     Dates: start: 20130525
  3. RENITEN SUBMITE [Concomitant]
     Dosage: 1 DF, QAM

REACTIONS (6)
  - Feeling abnormal [Recovered/Resolved]
  - Insomnia [Recovered/Resolved]
  - Hypertension [Recovered/Resolved]
  - Bradycardia [Recovered/Resolved]
  - Malaise [Recovered/Resolved]
  - Anxiety [Recovered/Resolved]
